FAERS Safety Report 6216503-3 (Version None)
Quarter: 2009Q2

REPORT INFORMATION
  Report Type: 
  Country: None (occurrence: None)
  Receive Date: 20090603
  Receipt Date: 20090603
  Transmission Date: 20091009
  Serious: Yes (Life-Threatening, Hospitalization)
  Sender: FDA-Public Use
  Company Number: None

PATIENT
  Age: 83 Year
  Sex: Male

DRUGS (1)
  1. ULORIC [Suspect]
     Indication: GOUT
     Dosage: 40MG PILL ONE PER DAY PO 047
     Route: 048
     Dates: start: 20090417

REACTIONS (2)
  - PALLOR [None]
  - PRESYNCOPE [None]
